FAERS Safety Report 15926881 (Version 2)
Quarter: 2019Q1

REPORT INFORMATION
  Report Type: Spontaneous
  Country: US (occurrence: US)
  Receive Date: 20190205
  Receipt Date: 20190219
  Transmission Date: 20190417
  Serious: No
  Sender: FDA-Public Use
  Company Number: US-ALLERGAN-1852638US

PATIENT
  Age: 3 Month
  Sex: Male
  Weight: 8.6 kg

DRUGS (9)
  1. BOTOX [Suspect]
     Active Substance: ONABOTULINUMTOXINA
     Indication: SKIN WRINKLING
  2. BOTOX [Suspect]
     Active Substance: ONABOTULINUMTOXINA
     Indication: SKIN WRINKLING
  3. KEPPRA [Concomitant]
     Active Substance: LEVETIRACETAM
     Indication: SEIZURE
  4. BOTOX [Suspect]
     Active Substance: ONABOTULINUMTOXINA
     Indication: MUSCLE SPASTICITY
     Dosage: ACTUAL: 10 U/10U MASSETER,10 U/10U TEMPORALIS,ILIOPSOAS10 U/10U,HAMSTRING 40 U, SINGLE
     Route: 030
     Dates: start: 20180210, end: 20180210
  5. ETHANOL INJECTION [Concomitant]
     Indication: PRODUCT USED FOR UNKNOWN INDICATION
     Dosage: ACTUAL:0.1/0.2 GRAC, 0.4/0.5 BRACHS,0.4/0.3RECT-FEM,0.5HMSTRG,0.5/0.5GSTRC,0.3/0.3HIPADDUCTS(ML)
     Route: 030
  6. CHOLECALCIFEROL [Concomitant]
     Active Substance: CHOLECALCIFEROL
  7. RANITIDINE. [Concomitant]
     Active Substance: RANITIDINE
  8. BOTOX [Suspect]
     Active Substance: ONABOTULINUMTOXINA
     Indication: SKIN WRINKLING
  9. BOTOX [Suspect]
     Active Substance: ONABOTULINUMTOXINA
     Indication: SKIN WRINKLING

REACTIONS (5)
  - Aggression [Unknown]
  - Wrong technique in product usage process [Unknown]
  - Screaming [Unknown]
  - Abnormal behaviour [Unknown]
  - Insomnia [Not Recovered/Not Resolved]

NARRATIVE: CASE EVENT DATE: 20180210
